FAERS Safety Report 11240661 (Version 1)
Quarter: 2015Q3

REPORT INFORMATION
  Report Type: Spontaneous
  Country: US (occurrence: None)
  Receive Date: 20150701
  Receipt Date: 20150701
  Transmission Date: 20151125
  Serious: Yes (Hospitalization)
  Sender: FDA-Public Use
  Company Number: None

PATIENT
  Age: 74 Year
  Sex: Male
  Weight: 83.6 kg

DRUGS (1)
  1. PENCILLIN [Suspect]
     Active Substance: PENICILLIN
     Indication: PHARYNGITIS
     Route: 048
     Dates: start: 20150526, end: 20150529

REACTIONS (5)
  - Refusal of treatment by patient [None]
  - Lip oedema [None]
  - Dysphonia [None]
  - Angioedema [None]
  - Pharyngeal oedema [None]

NARRATIVE: CASE EVENT DATE: 20150529
